FAERS Safety Report 4600324-9 (Version None)
Quarter: 2005Q1

REPORT INFORMATION
  Report Type: 
  Country: None (occurrence: None)
  Receive Date: 20050303
  Receipt Date: 20050211
  Transmission Date: 20050727
  Serious: Yes (Hospitalization, Other)
  Sender: FDA-Public Use
  Company Number: USA050290594

PATIENT
  Age: 81 Year
  Sex: Female

DRUGS (5)
  1. HUMULIN N [Suspect]
     Indication: DIABETES MELLITUS
     Dosage: 40 U DAY
     Dates: start: 19900101, end: 20040701
  2. NOVOLIN N [Concomitant]
  3. COUMADIN [Concomitant]
  4. SINGULAIR (MONTELUKAST) [Concomitant]
  5. ADVAIR DISKUS 100/50 [Concomitant]

REACTIONS (7)
  - HYPERHIDROSIS [None]
  - IMPAIRED HEALING [None]
  - LIMB INJURY [None]
  - LOCALISED INFECTION [None]
  - PNEUMONIA [None]
  - SKIN ULCER [None]
  - TOE AMPUTATION [None]
